FAERS Safety Report 9085975 (Version 1)
Quarter: 2013Q1

REPORT INFORMATION
  Report Type: Report from Study
  Country: US (occurrence: US)
  Receive Date: 20130130
  Receipt Date: 20130130
  Transmission Date: 20140127
  Serious: No
  Sender: FDA-Public Use
  Company Number: US-ABBOTT-12P-163-0979686-00

PATIENT
  Age: 20 Year
  Sex: Female

DRUGS (3)
  1. HUMIRA [Suspect]
     Indication: CROHN^S DISEASE
     Dates: start: 20120825, end: 20120825
  2. HUMIRA [Suspect]
     Dates: start: 20120909, end: 20120909
  3. HUMIRA [Suspect]

REACTIONS (1)
  - Inappropriate schedule of drug administration [Recovered/Resolved]
